FAERS Safety Report 8435922-8 (Version None)
Quarter: 2012Q2

REPORT INFORMATION
  Report Type: 
  Country: None (occurrence: None)
  Receive Date: 20120607
  Receipt Date: 20120607
  Transmission Date: 20120825
  Serious: No
  Sender: FDA-Public Use
  Company Number: None

PATIENT
  Sex: Female

DRUGS (2)
  1. CEFTRIAXONE [Suspect]
     Indication: CELLULITIS
     Dosage: 2 GRAMS DAI IV
     Route: 042
     Dates: start: 20120521, end: 20120531
  2. CEFTRIAXONE [Suspect]
     Indication: CELLULITIS
     Dosage: 2 GRAMS DAILY IV
     Route: 042
     Dates: start: 20120521, end: 20120531

REACTIONS (1)
  - URTICARIA [None]
